FAERS Safety Report 4557170-4 (Version None)
Quarter: 2005Q1

REPORT INFORMATION
  Report Type: 
  Country: None (occurrence: None)
  Receive Date: 20050118
  Receipt Date: 20050113
  Transmission Date: 20050727
  Serious: Yes (Other)
  Sender: FDA-Public Use
  Company Number: 2005-01-0816

PATIENT
  Age: 60 Year
  Sex: Female

DRUGS (3)
  1. TEMODAL [Suspect]
     Dosage: ORAL
     Route: 048
  2. RADIATION THERAPY [Concomitant]
  3. ANTICONVULSANTS (NOS) [Concomitant]

REACTIONS (1)
  - HEPATITIS [None]
